FAERS Safety Report 7115068-1 (Version None)
Quarter: 2010Q4

REPORT INFORMATION
  Report Type: 
  Country: None (occurrence: None)
  Receive Date: 20101122
  Receipt Date: 20101110
  Transmission Date: 20110411
  Serious: Yes (Hospitalization)
  Sender: FDA-Public Use
  Company Number: US-JNJFOC-20101104410

PATIENT
  Sex: Female
  Weight: 72.58 kg

DRUGS (16)
  1. FENTANYL [Suspect]
     Indication: BACK PAIN
     Route: 062
  2. FENTANYL [Suspect]
     Route: 062
  3. SYNTHROID [Concomitant]
     Indication: HYPOTHYROIDISM
     Dosage: EXCEPT SUNDAY
     Route: 048
  4. UNKNOWN MEDICATION [Concomitant]
     Indication: HYPERTENSION
     Route: 048
  5. CLONIDINE [Concomitant]
     Indication: HYPERTENSION
     Route: 048
  6. REGLAN [Concomitant]
     Indication: GASTROINTESTINAL DISORDER
     Route: 048
  7. VITAMIN - CENTRUM SILVER [Concomitant]
     Indication: NUTRITIONAL SUPPORT
     Route: 048
  8. VERELAN PM [Concomitant]
     Indication: HYPERTENSION
     Dosage: AT BED TIME
     Route: 048
  9. OXYCODONE HCL AND ACETAMINOPHEN [Concomitant]
     Indication: PAIN
     Dosage: 3-325MG/AS NEEDED
     Route: 048
  10. LORAZEPAM [Concomitant]
     Indication: ANXIETY
     Dosage: THRICE A DAY AND TWO AT BED TIME
     Route: 048
  11. BENADRYL [Concomitant]
     Route: 048
  12. VITAMIN D [Concomitant]
     Indication: MINERAL SUPPLEMENTATION
     Dosage: 50000  UNITS
     Route: 048
  13. SOMA [Concomitant]
     Indication: MUSCLE SPASMS
     Route: 048
  14. CALCIUM [Concomitant]
     Indication: NUTRITIONAL SUPPORT
     Route: 048
  15. PROMETHAZINE [Concomitant]
     Indication: NAUSEA
     Route: 048
  16. UNKNOWN MEDICATION [Concomitant]
     Indication: PROCTALGIA
     Dosage: AS NEEDED
     Route: 061

REACTIONS (16)
  - ABDOMINAL PAIN [None]
  - ANEURYSM [None]
  - CHEST DISCOMFORT [None]
  - CHILLS [None]
  - HEART RATE INCREASED [None]
  - HYPERHIDROSIS [None]
  - HYPERTENSION [None]
  - IRRITABILITY [None]
  - MYALGIA [None]
  - MYOCARDIAL INFARCTION [None]
  - PAIN [None]
  - PILOERECTION [None]
  - PROCTALGIA [None]
  - PRODUCT QUALITY ISSUE [None]
  - THERAPEUTIC RESPONSE DECREASED [None]
  - WITHDRAWAL SYNDROME [None]
